FAERS Safety Report 25366536 (Version 1)
Quarter: 2025Q2

REPORT INFORMATION
  Report Type: Spontaneous
  Country: ES (occurrence: ES)
  Receive Date: 20250528
  Receipt Date: 20250528
  Transmission Date: 20250716
  Serious: Yes (Hospitalization, Other)
  Sender: IPCA
  Company Number: ES-IPCA LABORATORIES LIMITED-IPC-2025-ES-001399

PATIENT

DRUGS (2)
  1. LAMOTRIGINE [Suspect]
     Active Substance: LAMOTRIGINE
     Indication: Product used for unknown indication
     Route: 048
  2. PROPRANOLOL [Suspect]
     Active Substance: PROPRANOLOL HYDROCHLORIDE
     Indication: Product used for unknown indication
     Route: 048

REACTIONS (10)
  - Ventricular tachycardia [Recovering/Resolving]
  - Depressed level of consciousness [Recovering/Resolving]
  - Electrocardiogram QRS complex prolonged [Recovering/Resolving]
  - Generalised tonic-clonic seizure [Recovering/Resolving]
  - Coma [Recovering/Resolving]
  - Condition aggravated [Recovering/Resolving]
  - Neurological decompensation [Recovering/Resolving]
  - Toxicity to various agents [Recovering/Resolving]
  - Nervous system disorder [Recovering/Resolving]
  - Overdose [Unknown]
